FAERS Safety Report 4471905-0 (Version None)
Quarter: 2004Q4

REPORT INFORMATION
  Report Type: 
  Country: None (occurrence: None)
  Receive Date: 20041006
  Receipt Date: 20040920
  Transmission Date: 20050328
  Serious: Yes (Hospitalization)
  Sender: FDA-Public Use
  Company Number: 195066

PATIENT
  Age: 54 Year
  Sex: Female

DRUGS (3)
  1. AVONEX [Suspect]
     Indication: MULTIPLE SCLEROSIS
     Dosage: 30 MCG QW IM
     Route: 030
     Dates: start: 20030801
  2. ASPIRIN [Concomitant]
  3. LOPRESSOR [Concomitant]

REACTIONS (4)
  - ACUTE CORONARY SYNDROME [None]
  - ANGINA PECTORIS [None]
  - FATIGUE [None]
  - SLUGGISHNESS [None]
